FAERS Safety Report 16642035 (Version 1)
Quarter: 2019Q3

REPORT INFORMATION
  Report Type: Spontaneous
  Country: US (occurrence: US)
  Receive Date: 20190727
  Receipt Date: 20190727
  Transmission Date: 20191004
  Serious: No
  Sender: FDA-Public Use
  Company Number: None

PATIENT
  Age: 67 Year
  Weight: 123.75 kg

DRUGS (2)
  1. BIPAP [Concomitant]
     Active Substance: DEVICE
  2. SYNTHROID [Suspect]
     Active Substance: LEVOTHYROXINE SODIUM
     Indication: HYPOTHYROIDISM
     Dosage: ?          QUANTITY:1 TABLET(S);?
     Route: 048
     Dates: start: 20190724, end: 20190727

REACTIONS (4)
  - Fatigue [None]
  - Tremor [None]
  - Coordination abnormal [None]
  - Headache [None]

NARRATIVE: CASE EVENT DATE: 20190727
